FAERS Safety Report 10232578 (Version 1)
Quarter: 2014Q2

REPORT INFORMATION
  Report Type: Spontaneous
  Country: US (occurrence: US)
  Receive Date: 20140612
  Receipt Date: 20140612
  Transmission Date: 20141212
  Serious: No
  Sender: FDA-Public Use
  Company Number: US-TEVA-484844USA

PATIENT
  Sex: Female

DRUGS (4)
  1. QUETIAPINE FUMARATE [Suspect]
     Indication: BIPOLAR DISORDER
     Dosage: 50 MILLIGRAM DAILY; HS
     Route: 048
     Dates: start: 20140516
  2. CLONAZEPAM [Concomitant]
  3. VALPROATE SEMISODIUM [Concomitant]
  4. SERTRALINE [Concomitant]

REACTIONS (4)
  - Somnolence [Unknown]
  - Anxiety [Unknown]
  - Mental disorder [Unknown]
  - Drug ineffective [Unknown]
